FAERS Safety Report 8003698-4 (Version None)
Quarter: 2011Q4

REPORT INFORMATION
  Report Type: 
  Country: None (occurrence: None)
  Receive Date: 20111222
  Receipt Date: 20111216
  Transmission Date: 20120403
  Serious: Yes (Hospitalization)
  Sender: FDA-Public Use
  Company Number: US-ACTELION-A-US2010-36870

PATIENT

DRUGS (7)
  1. VENTAVIS [Suspect]
     Dosage: UNK
     Route: 055
     Dates: start: 20100510, end: 20100525
  2. OXYGEN [Concomitant]
  3. COUMADIN [Concomitant]
  4. SILDENAFIL CITRATE [Concomitant]
  5. CALCIUM CHANNEL BLOCKERS [Concomitant]
  6. VENTAVIS [Suspect]
     Indication: PULMONARY ARTERIAL HYPERTENSION
     Dosage: UNK
     Route: 055
     Dates: start: 20100222, end: 20100525
  7. TRACLEER [Suspect]
     Indication: PULMONARY ARTERIAL HYPERTENSION
     Dosage: UNK
     Route: 048
     Dates: start: 20080302

REACTIONS (5)
  - ACUTE RESPIRATORY DISTRESS SYNDROME [None]
  - PNEUMONIA [None]
  - DYSPNOEA [None]
  - HYPOXIA [None]
  - HYPERKALAEMIA [None]
